FAERS Safety Report 9821274 (Version 2)
Quarter: 2014Q1

REPORT INFORMATION
  Report Type: Spontaneous
  Country: US (occurrence: US)
  Receive Date: 20140116
  Receipt Date: 20140218
  Transmission Date: 20141002
  Serious: No
  Sender: FDA-Public Use
  Company Number: US-GILEAD-2014-0092248

PATIENT
  Age: 64 Year
  Sex: Female

DRUGS (15)
  1. LETAIRIS [Suspect]
     Indication: PULMONARY ARTERIAL HYPERTENSION
     Dosage: 10 MG, QD
     Route: 065
     Dates: start: 20130801
  2. LETAIRIS [Suspect]
     Dates: start: 20140113, end: 20140214
  3. ADCIRCA [Concomitant]
  4. VITAMIN D NOS [Concomitant]
  5. ZEMPLAR [Concomitant]
  6. CILOSTAZOL [Concomitant]
  7. RANEXA [Concomitant]
  8. FUROSEMIDE [Concomitant]
  9. ACTOS [Concomitant]
  10. GLIPIZIDE [Concomitant]
  11. ATENOLOL [Concomitant]
  12. LOSARTAN [Concomitant]
  13. AMLODIPINE [Concomitant]
  14. LEVEMIR [Concomitant]
  15. NOVOLOG [Concomitant]

REACTIONS (4)
  - Chills [Not Recovered/Not Resolved]
  - Nasal congestion [Not Recovered/Not Resolved]
  - Fatigue [Unknown]
  - Oedema [Unknown]
